FAERS Safety Report 5122337-3 (Version None)
Quarter: 2006Q4

REPORT INFORMATION
  Report Type: 
  Country: None (occurrence: None)
  Receive Date: 20061003
  Receipt Date: 20060921
  Transmission Date: 20070319
  Serious: Yes (Death)
  Sender: FDA-Public Use
  Company Number: TMDP-PR-0609S-0012

PATIENT
  Sex: Female

DRUGS (2)
  1. TECHNETIUM TC 99M MPI MDP [Suspect]
     Indication: WOUND
     Dosage: 925 MBG, SINGLE DOSE, I.V.
     Route: 042
     Dates: start: 20060101, end: 20060101
  2. TECHNETIUM (TC99M) GENERATOR (MALLINCKRODT) (SODIUM PERTECHNETATE TC99 [Concomitant]

REACTIONS (5)
  - DYSPNOEA [None]
  - GENERAL PHYSICAL HEALTH DETERIORATION [None]
  - LOSS OF CONSCIOUSNESS [None]
  - REFUSAL OF TREATMENT BY PATIENT [None]
  - WHEEZING [None]
